FAERS Safety Report 10959891 (Version 2)
Quarter: 2015Q2

REPORT INFORMATION
  Report Type: Spontaneous
  Country: US (occurrence: None)
  Receive Date: 20150325
  Receipt Date: 20150520
  Transmission Date: 20150821
  Serious: Yes (Life-Threatening, Hospitalization, Other)
  Sender: FDA-Public Use
  Company Number: 2015EXPUS00319

PATIENT
  Age: 85 Year
  Sex: Male
  Weight: 72 kg

DRUGS (2)
  1. BUPIVACAINE [Suspect]
     Active Substance: BUPIVACAINE
  2. EXPAREL [Suspect]
     Active Substance: BUPIVACAINE
     Indication: POSTOPERATIVE ANALGESIA

REACTIONS (6)
  - Seizure [None]
  - Subdural haematoma [None]
  - Hypotension [None]
  - Toxicity to various agents [None]
  - Overdose [None]
  - Respiratory failure [None]

NARRATIVE: CASE EVENT DATE: 20150212
